FAERS Safety Report 9145602 (Version 1)
Quarter: 2013Q1

REPORT INFORMATION
  Report Type: Spontaneous
  Country: US (occurrence: US)
  Receive Date: 20130307
  Receipt Date: 20130307
  Transmission Date: 20140127
  Serious: No
  Sender: FDA-Public Use
  Company Number: US-PFIZER INC-2013077841

PATIENT
  Age: 52 Year
  Sex: Male
  Weight: 72.56 kg

DRUGS (3)
  1. LYRICA [Suspect]
     Indication: NEURALGIA
     Dosage: 150 MG, 3X/DAY
     Route: 048
  2. MORPHINE SULFATE [Suspect]
     Indication: BACK PAIN
     Dosage: 15 MG, 3X/DAY
  3. BACLOFEN [Suspect]
     Indication: PAIN
     Dosage: 20 MG, 3X/DAY

REACTIONS (1)
  - Enuresis [Unknown]
